FAERS Safety Report 5083446-0 (Version None)
Quarter: 2006Q3

REPORT INFORMATION
  Report Type: 
  Country: None (occurrence: None)
  Receive Date: 20060818
  Receipt Date: 20060810
  Transmission Date: 20061208
  Serious: Yes (Other)
  Sender: FDA-Public Use
  Company Number: 2006AC01496

PATIENT

DRUGS (2)
  1. ARIMIDEX [Suspect]
     Indication: BREAST CANCER
  2. VALSARTAN [Concomitant]

REACTIONS (1)
  - HEPATITIS TOXIC [None]
